FAERS Safety Report 6267980-3 (Version None)
Quarter: 2009Q3

REPORT INFORMATION
  Report Type: 
  Country: None (occurrence: None)
  Receive Date: 20090713
  Receipt Date: 20090630
  Transmission Date: 20100115
  Serious: Yes (Other)
  Sender: FDA-Public Use
  Company Number: A-US2009-25938

PATIENT
  Age: 82 Year
  Sex: Male
  Weight: 79.8 kg

DRUGS (3)
  1. TRACLEER [Suspect]
     Indication: PULMONARY ARTERIAL HYPERTENSION
     Dosage: 62.5 MG, BID,ORAL; 125 MG, BID,ORAL
     Route: 048
     Dates: start: 20090204, end: 20090301
  2. TRACLEER [Suspect]
     Indication: PULMONARY ARTERIAL HYPERTENSION
     Dosage: 62.5 MG, BID,ORAL; 125 MG, BID,ORAL
     Route: 048
     Dates: start: 20090301, end: 20090511
  3. OXYGEN (OXYGEN) [Concomitant]

REACTIONS (3)
  - BREATHING-RELATED SLEEP DISORDER [None]
  - GASTROINTESTINAL HAEMORRHAGE [None]
  - INSOMNIA [None]
